FAERS Safety Report 22769069 (Version 2)
Quarter: 2023Q4

REPORT INFORMATION
  Report Type: Spontaneous
  Country: US (occurrence: US)
  Receive Date: 20230731
  Receipt Date: 20231220
  Transmission Date: 20240109
  Serious: No
  Sender: FDA-Public Use
  Company Number: US-PFIZER INC-202300263881

PATIENT
  Age: 75 Year
  Sex: Female

DRUGS (1)
  1. MORPHINE SULFATE [Suspect]
     Active Substance: MORPHINE SULFATE
     Dosage: UNK

REACTIONS (3)
  - Drug hypersensitivity [Unknown]
  - Nausea [Unknown]
  - Vomiting [Unknown]
